FAERS Safety Report 5722047-5 (Version None)
Quarter: 2008Q2

REPORT INFORMATION
  Report Type: 
  Country: None (occurrence: None)
  Receive Date: 20080429
  Receipt Date: 20080421
  Transmission Date: 20081010
  Serious: Yes (Hospitalization)
  Sender: FDA-Public Use
  Company Number: US-ELI_LILLY_AND_COMPANY-US200804005306

PATIENT
  Sex: Female

DRUGS (17)
  1. BYETTA [Suspect]
     Indication: TYPE 2 DIABETES MELLITUS
     Dosage: 5 UG, 2/D
     Route: 058
     Dates: start: 20080201
  2. MICRONASE [Concomitant]
     Dosage: UNK, UNKNOWN
  3. ACTOS [Concomitant]
     Dosage: 45 MG, UNKNOWN
  4. CALCIUM [Concomitant]
     Dosage: 1200 MG, UNKNOWN
  5. VICODIN [Concomitant]
     Dosage: UNK, UNKNOWN
  6. FOSAMAX [Concomitant]
     Dosage: 70 MG, UNKNOWN
  7. TRAZODONE HCL [Concomitant]
     Dosage: 50 MG, UNKNOWN
  8. ARANESP [Concomitant]
     Dosage: 500 U, UNKNOWN
  9. IRON [Concomitant]
     Dosage: UNK, UNKNOWN
  10. LASIX [Concomitant]
     Dosage: 20 MG, UNKNOWN
  11. AVAPRO [Concomitant]
     Dosage: 150 MG, UNKNOWN
  12. SYNTHROID [Concomitant]
     Dosage: 0.125 UNK, UNKNOWN
  13. IMODIUM [Concomitant]
     Dosage: UNK, AS NEEDED
  14. PROTONIX [Concomitant]
     Dosage: 40 MG, UNKNOWN
  15. ZOCOR [Concomitant]
     Dosage: 80 MG, UNKNOWN
  16. PAXIL [Concomitant]
     Dosage: UNK, UNKNOWN
  17. ASPIRIN [Concomitant]
     Dosage: 81 MG, UNKNOWN

REACTIONS (4)
  - BLOOD CREATININE INCREASED [None]
  - BLOOD POTASSIUM INCREASED [None]
  - DEHYDRATION [None]
  - DIARRHOEA [None]
